FAERS Safety Report 4709975-4 (Version None)
Quarter: 2005Q3

REPORT INFORMATION
  Report Type: 
  Country: None (occurrence: None)
  Receive Date: 20050706
  Receipt Date: 20050621
  Transmission Date: 20060218
  Serious: Yes (Other)
  Sender: FDA-Public Use
  Company Number: 215509

PATIENT
  Age: 68 Year
  Sex: Male
  Weight: 50 kg

DRUGS (14)
  1. RITUXAN [Suspect]
     Indication: NON-HODGKIN'S LYMPHOMA
     Dosage: 550 MG INTRAVENOUS
     Route: 042
     Dates: start: 20020228, end: 20020521
  2. PIRARUBICIN HYDROCHLORIDE (PIRARUBICIN) [Suspect]
     Indication: NON-HODGKIN'S LYMPHOMA
     Dosage: 4.5 MG INTRAVENOUS
     Route: 042
     Dates: start: 20020301, end: 20020526
  3. FILDESIN (VINDESINE SULFATE) [Suspect]
     Indication: NON-HODGKIN'S LYMPHOMA
     Dosage: 2.25 MG INTRAVENOUS
     Route: 042
     Dates: start: 20020301, end: 20020526
  4. CYCLOPHOSPHAMIDE [Suspect]
     Indication: NON-HODGKIN'S LYMPHOMA
     Dosage: 750 MG INTRAVENOUS
     Route: 042
     Dates: start: 20020301, end: 20020526
  5. PREDONINE (PREDNISOLONE SODIUM SUCCINATE, PREDNISOLONE, PREDNISOLONE A [Suspect]
     Indication: NON-HODGKIN'S LYMPHOMA
     Dosage: 45 MG, ORAL
     Route: 048
     Dates: start: 20020301, end: 20020526
  6. SPARA (SPARFLOXACIN) [Suspect]
     Indication: INFECTION
     Dosage: 200 MG, ORAL
     Route: 048
     Dates: start: 20020430, end: 20020607
  7. METHYCOBAL (MECOBALAMIN) [Concomitant]
  8. MUCOSTA (REBAMIPIDE) [Concomitant]
  9. ADAPTINOL (XANTOFYL PALMITATE) [Concomitant]
  10. PURSENNID (SENNOSIDES) [Concomitant]
  11. POLARAMINE [Concomitant]
  12. FLURBIPROFEN AXETIL (FLURBIPROFEN) [Concomitant]
  13. ALESION (EPINASTINE HYDROCHLORIDE) [Concomitant]
  14. KEITEN (CEFPIROME SULFATE) [Concomitant]

REACTIONS (3)
  - NEUTROPHIL COUNT DECREASED [None]
  - UPPER RESPIRATORY TRACT INFLAMMATION [None]
  - WHITE BLOOD CELL COUNT DECREASED [None]
